FAERS Safety Report 9537017 (Version 1)
Quarter: 2013Q3

REPORT INFORMATION
  Report Type: Spontaneous
  Country: US (occurrence: None)
  Receive Date: 20130918
  Receipt Date: 20130918
  Transmission Date: 20140515
  Serious: Yes (Hospitalization, Disabling)
  Sender: FDA-Public Use
  Company Number: None

PATIENT
  Age: 34 Year
  Sex: Male
  Weight: 100 kg

DRUGS (12)
  1. OPANA [Suspect]
     Indication: PAIN
     Route: 048
     Dates: start: 20120901, end: 20130917
  2. METOPROLOL , [Concomitant]
  3. DILTIAZEM , [Concomitant]
  4. DEPAKOTE ER  , [Concomitant]
  5. ALPRAZOLAM  , [Concomitant]
  6. PROTONIX  , [Concomitant]
  7. FOLIC ACID  , [Concomitant]
  8. PROCRIT  , [Concomitant]
  9. OXYCODONE , [Concomitant]
  10. RENAGEL  , [Concomitant]
  11. FERROUS SULFATE [Concomitant]
  12. SODIUM BICARB [Concomitant]

REACTIONS (8)
  - Staphylococcal infection [None]
  - Endocarditis [None]
  - Lung infiltration [None]
  - Septic embolus [None]
  - Splenomegaly [None]
  - Thrombocytopenia [None]
  - Renal failure acute [None]
  - Haemodialysis [None]
